FAERS Safety Report 14730112 (Version 2)
Quarter: 2019Q3

REPORT INFORMATION
  Report Type: Spontaneous
  Country: US (occurrence: US)
  Receive Date: 20180406
  Receipt Date: 20190713
  Transmission Date: 20191004
  Serious: Yes (Death, Hospitalization, Other)
  Sender: FDA-Public Use
  Company Number: US-PURDUE PHARMA-USA-2018-0143240

PATIENT
  Age: 11 Month
  Sex: Female

DRUGS (1)
  1. OXYCODONE HYDROCHLORIDE (SIMILAR TO NDA 22-272) [Suspect]
     Active Substance: OXYCODONE HYDROCHLORIDE
     Indication: PRODUCT USED FOR UNKNOWN INDICATION
     Dosage: UNK
     Route: 048
     Dates: start: 20170726

REACTIONS (8)
  - Cardio-respiratory arrest [Unknown]
  - Feeling cold [Unknown]
  - Unevaluable event [Unknown]
  - Toxicity to various agents [Fatal]
  - Product administered to patient of inappropriate age [Unknown]
  - Unresponsive to stimuli [Unknown]
  - Respiratory arrest [Unknown]
  - Cyanosis [Unknown]

NARRATIVE: CASE EVENT DATE: 20170726
